FAERS Safety Report 6206248-8 (Version None)
Quarter: 2009Q2

REPORT INFORMATION
  Report Type: 
  Country: None (occurrence: None)
  Receive Date: 20090526
  Receipt Date: 20090313
  Transmission Date: 20091009
  Serious: Yes (Death)
  Sender: FDA-Public Use
  Company Number: MEDI-0008096

PATIENT
  Age: 2 Month
  Sex: Male

DRUGS (1)
  1. SYNAGIS [Suspect]
     Indication: CARDIAC DISORDER
     Dosage: INTRAMUSCULAR
     Route: 030
     Dates: start: 20090101, end: 20090223

REACTIONS (1)
  - DEATH [None]
